FAERS Safety Report 7539655-1 (Version None)
Quarter: 2011Q2

REPORT INFORMATION
  Report Type: 
  Country: None (occurrence: None)
  Receive Date: 20110609
  Receipt Date: 20110609
  Transmission Date: 20111010
  Serious: Yes (Other)
  Sender: FDA-Public Use
  Company Number: None

PATIENT
  Age: 34 Year
  Sex: Female
  Weight: 57.6068 kg

DRUGS (2)
  1. OXYCODONE AND ACETAMINOPHEN [Suspect]
     Indication: PAIN
     Dosage: 1-2 EVERY 4 HOURS PO
     Route: 048
     Dates: start: 20110512, end: 20110518
  2. OXYCODONE AND ACETAMINOPHEN [Suspect]
     Indication: ORTHOPEDIC PROCEDURE
     Dosage: 1-2 EVERY 4 HOURS PO
     Route: 048
     Dates: start: 20110512, end: 20110518

REACTIONS (4)
  - PRURITUS [None]
  - RESPIRATORY DISORDER [None]
  - APNOEA [None]
  - CHEST PAIN [None]
